FAERS Safety Report 7001242-1 (Version None)
Quarter: 2010Q3

REPORT INFORMATION
  Report Type: 
  Country: None (occurrence: None)
  Receive Date: 20100920
  Receipt Date: 20100708
  Transmission Date: 20110219
  Serious: Yes (Hospitalization, Other)
  Sender: FDA-Public Use
  Company Number: US-ASTRAZENECA-2010SE31784

PATIENT
  Age: 49 Year
  Sex: Female
  Weight: 79.8 kg

DRUGS (6)
  1. SEROQUEL [Suspect]
     Route: 048
     Dates: start: 20100428, end: 20100520
  2. SEROQUEL [Suspect]
     Route: 048
     Dates: start: 20100101
  3. EFFEXOR [Suspect]
     Dosage: 75
     Dates: start: 20100428, end: 20100520
  4. GEODON [Suspect]
     Indication: MAJOR DEPRESSION
     Route: 048
  5. GEODON [Suspect]
     Route: 048
     Dates: end: 20100520
  6. TRAZODONE HCL [Suspect]
     Dosage: 50
     Dates: start: 20100428, end: 20100520

REACTIONS (5)
  - ANXIETY [None]
  - DYSKINESIA [None]
  - GAIT DISTURBANCE [None]
  - PSYCHOMOTOR HYPERACTIVITY [None]
  - TORTICOLLIS [None]
